FAERS Safety Report 8560543-6 (Version None)
Quarter: 2012Q3

REPORT INFORMATION
  Report Type: 
  Country: None (occurrence: None)
  Receive Date: 20120802
  Receipt Date: 20120723
  Transmission Date: 20120928
  Serious: Yes (Hospitalization)
  Sender: FDA-Public Use
  Company Number: FR-009507513-1207FRA012776

PATIENT

DRUGS (2)
  1. TRAVOPROST AND TIMOLOL [Suspect]
     Dosage: UNK
     Route: 031
     Dates: start: 20110101
  2. TRUSOPT [Suspect]
     Dosage: UNK
     Route: 031
     Dates: start: 19980101

REACTIONS (1)
  - HEPATIC CIRRHOSIS [None]
